FAERS Safety Report 12494137 (Version 2)
Quarter: 2016Q2

REPORT INFORMATION
  Report Type: Report from Study
  Country: US (occurrence: US)
  Receive Date: 20160623
  Receipt Date: 20160628
  Transmission Date: 20160815
  Serious: Yes (Hospitalization, Other)
  Sender: FDA-Public Use
  Company Number: PHEH2016US015479

PATIENT
  Age: 48 Year
  Sex: Male
  Weight: 133 kg

DRUGS (1)
  1. GILENYA [Suspect]
     Active Substance: FINGOLIMOD HYDROCHLORIDE
     Indication: MULTIPLE SCLEROSIS
     Dosage: 0.5 MG, QD
     Route: 048
     Dates: start: 20160617

REACTIONS (7)
  - Euphoric mood [Unknown]
  - Speech disorder [Recovered/Resolved with Sequelae]
  - Mental impairment [Unknown]
  - Dizziness [Unknown]
  - Feeling abnormal [Unknown]
  - Loss of consciousness [Unknown]
  - Blood pressure diastolic decreased [Unknown]

NARRATIVE: CASE EVENT DATE: 20160617
